FAERS Safety Report 8995343 (Version 1)
Quarter: 2013Q1

REPORT INFORMATION
  Report Type: Spontaneous
  Country: IE (occurrence: IE)
  Receive Date: 20130102
  Receipt Date: 20130102
  Transmission Date: 20140127
  Serious: Yes (Hospitalization)
  Sender: FDA-Public Use
  Company Number: IE-ASTRAZENECA-2012SE96404

PATIENT
  Age: 2 Month
  Sex: Male

DRUGS (3)
  1. SYNAGIS [Suspect]
     Indication: HEART DISEASE CONGENITAL
     Route: 030
     Dates: start: 20121115
  2. PROPRANOLOL [Concomitant]
  3. VITAMIN D [Concomitant]

REACTIONS (1)
  - Bronchiolitis [Recovered/Resolved]
